FAERS Safety Report 4950078-1 (Version None)
Quarter: 2006Q1

REPORT INFORMATION
  Report Type: 
  Country: None (occurrence: None)
  Receive Date: 20060322
  Receipt Date: 20060313
  Transmission Date: 20060701
  Serious: Yes (Hospitalization)
  Sender: FDA-Public Use
  Company Number: 2006UW04486

PATIENT
  Sex: Female

DRUGS (4)
  1. ZOMIG [Suspect]
     Indication: MIGRAINE
     Route: 048
     Dates: start: 20060307, end: 20060307
  2. CLONIDINE [Concomitant]
     Indication: HOT FLUSH
  3. AMITRIPTYLINE HCL [Concomitant]
     Indication: MIGRAINE
     Dates: start: 20051215
  4. AMITRIPTYLINE HCL [Concomitant]
     Indication: INSOMNIA
     Dates: start: 20051215

REACTIONS (3)
  - BLOOD PRESSURE INCREASED [None]
  - CEREBROVASCULAR ACCIDENT [None]
  - TRANSIENT ISCHAEMIC ATTACK [None]
